FAERS Safety Report 8995111 (Version 1)
Quarter: 2012Q4

REPORT INFORMATION
  Report Type: Spontaneous
  Country: US (occurrence: None)
  Receive Date: 20121228
  Receipt Date: 20121228
  Transmission Date: 20130627
  Serious: Yes (Hospitalization)
  Sender: FDA-Public Use
  Company Number: None

PATIENT
  Age: 61 Year
  Sex: Male
  Weight: 116.2 kg

DRUGS (2)
  1. HEPARIN [Suspect]
     Indication: ANTICOAGULANT THERAPY
     Dosage: 1200 UNITS Per Hour IV
     Route: 042
     Dates: start: 20121112, end: 20121116
  2. HEPARIN [Suspect]
     Indication: HEART VALVE REPLACEMENT
     Dosage: 1200 UNITS Per Hour IV
     Route: 042
     Dates: start: 20121112, end: 20121116

REACTIONS (1)
  - Heparin-induced thrombocytopenia [None]
